FAERS Safety Report 5877642-X (Version None)
Quarter: 2008Q3

REPORT INFORMATION
  Report Type: 
  Country: None (occurrence: None)
  Receive Date: 20080911
  Receipt Date: 20080909
  Transmission Date: 20090109
  Serious: Yes (Other)
  Sender: FDA-Public Use
  Company Number: DE-BRISTOL-MYERS SQUIBB COMPANY-13779624

PATIENT
  Age: 63 Year
  Sex: Female
  Weight: 60 kg

DRUGS (1)
  1. BARACLUDE [Suspect]
     Indication: HEPATITIS B
     Dosage: INTERRUPTED ON 13APR06, RECEIVED TREATMENT WITH ENTECAVIR 0.5MG/D AGAIN FROM MAR-2007 TO JUN-2007.
     Route: 048
     Dates: start: 20031014

REACTIONS (1)
  - NON-HODGKIN'S LYMPHOMA RECURRENT [None]
